FAERS Safety Report 15453399 (Version 1)
Quarter: 2018Q4

REPORT INFORMATION
  Report Type: Other
  Country: FR (occurrence: FR)
  Receive Date: 20181001
  Receipt Date: 20181001
  Transmission Date: 20190204
  Serious: Yes (Hospitalization, Other)
  Sender: FDA-Public Use
  Company Number: FR-AKRON, INC.-2055556

PATIENT
  Age: 82 Year
  Sex: Male

DRUGS (1)
  1. COSOPT [Suspect]
     Active Substance: DORZOLAMIDE HYDROCHLORIDE\TIMOLOL MALEATE
     Indication: ANGLE CLOSURE GLAUCOMA
     Route: 047

REACTIONS (8)
  - Hypercapnia [Recovered/Resolved]
  - Contraindicated product administered [Recovering/Resolving]
  - Atrioventricular block complete [Recovering/Resolving]
  - Acute respiratory distress syndrome [Recovering/Resolving]
  - Bronchospasm [Recovering/Resolving]
  - Hypoxia [Recovered/Resolved]
  - Hypertension [Recovering/Resolving]
  - Respiratory acidosis [Recovered/Resolved]
